FAERS Safety Report 6638696-6 (Version None)
Quarter: 2010Q1

REPORT INFORMATION
  Report Type: 
  Country: None (occurrence: None)
  Receive Date: 20100316
  Receipt Date: 20100316
  Transmission Date: 20100710
  Serious: Yes (Other)
  Sender: FDA-Public Use
  Company Number: None

PATIENT
  Age: 37 Year
  Sex: Female
  Weight: 113.3993 kg

DRUGS (2)
  1. PREDNISONE [Suspect]
     Indication: ANTIBIOTIC THERAPY
     Dosage: 3 FOR 3 DAYS; 2 FOR 3 DAYS; 1 FOR 3 DAYS ; 1/2 FOR 2 DAYS ONE A DAY PO
     Route: 048
     Dates: start: 20100302, end: 20100308
  2. PREDNISONE [Suspect]
     Indication: MIDDLE EAR EFFUSION
     Dosage: 3 FOR 3 DAYS; 2 FOR 3 DAYS; 1 FOR 3 DAYS ; 1/2 FOR 2 DAYS ONE A DAY PO
     Route: 048
     Dates: start: 20100302, end: 20100308

REACTIONS (4)
  - CHEST PAIN [None]
  - NAUSEA [None]
  - PAIN [None]
  - VOMITING [None]
